FAERS Safety Report 5088577-7 (Version None)
Quarter: 2006Q3

REPORT INFORMATION
  Report Type: 
  Country: None (occurrence: None)
  Receive Date: 20060726
  Receipt Date: 20060508
  Transmission Date: 20061208
  Serious: Yes (Death)
  Sender: FDA-Public Use
  Company Number: USA-2006-0024179

PATIENT
  Sex: Male

DRUGS (2)
  1. MS CONTIN [Suspect]
     Indication: BACK PAIN
     Dosage: 60 MG, TID
  2. OXYIR [Concomitant]

REACTIONS (1)
  - OVERDOSE [None]
